FAERS Safety Report 4406564-6 (Version None)
Quarter: 2004Q2

REPORT INFORMATION
  Report Type: 
  Country: None (occurrence: None)
  Receive Date: 20040618
  Receipt Date: 20040504
  Transmission Date: 20050107
  Serious: No
  Sender: FDA-Public Use
  Company Number: US-JNJFOC-20040501239

PATIENT
  Age: 27 Year
  Sex: Female
  Weight: 63.5036 kg

DRUGS (2)
  1. ORTHO EVRA [Suspect]
     Indication: CONTRACEPTION
     Dosage: 1 DOSE(S), 3 IN 4, TRANSDERMAL
     Route: 062
     Dates: start: 20040404
  2. PRENATAL VITAMINS () PRENATAL VITAMINS [Concomitant]

REACTIONS (3)
  - LOCAL SWELLING [None]
  - NAIL BED BLEEDING [None]
  - NAIL BED TENDERNESS [None]
